FAERS Safety Report 8069381-4 (Version None)
Quarter: 2012Q1

REPORT INFORMATION
  Report Type: 
  Country: None (occurrence: None)
  Receive Date: 20120118
  Receipt Date: 20120110
  Transmission Date: 20120608
  Serious: Yes (Hospitalization)
  Sender: FDA-Public Use
  Company Number: JPI-P-018890

PATIENT
  Age: 25 Year
  Sex: Female
  Weight: 111.1313 kg

DRUGS (11)
  1. LAMOTRIGINE [Concomitant]
  2. XYREM [Suspect]
     Indication: NARCOLEPSY
     Dosage: 4.5 GM (2.25 GM, 2 IN 1 D), ORAL; ORAL
     Route: 048
     Dates: start: 20110101, end: 20110621
  3. XYREM [Suspect]
     Indication: SOMNOLENCE
     Dosage: 4.5 GM (2.25 GM, 2 IN 1 D), ORAL; ORAL
     Route: 048
     Dates: start: 20110101, end: 20110621
  4. XYREM [Suspect]
     Indication: NARCOLEPSY
     Dosage: 4.5 GM (2.25 GM, 2 IN 1 D), ORAL; ORAL
     Route: 048
     Dates: start: 20110622
  5. XYREM [Suspect]
     Indication: SOMNOLENCE
     Dosage: 4.5 GM (2.25 GM, 2 IN 1 D), ORAL; ORAL
     Route: 048
     Dates: start: 20110622
  6. XYREM [Suspect]
     Indication: NARCOLEPSY
     Dosage: 4.5 GM (2.25 GM, 2 IN 1 D), ORAL; ORAL
     Route: 048
     Dates: start: 20110101
  7. XYREM [Suspect]
     Indication: SOMNOLENCE
     Dosage: 4.5 GM (2.25 GM, 2 IN 1 D), ORAL; ORAL
     Route: 048
     Dates: start: 20110101
  8. XYREM [Suspect]
     Indication: NARCOLEPSY
     Dosage: 4.5 GM (2.25 GM, 2 IN 1 D), ORAL; ORAL
     Route: 048
     Dates: start: 20110516
  9. XYREM [Suspect]
     Indication: SOMNOLENCE
     Dosage: 4.5 GM (2.25 GM, 2 IN 1 D), ORAL; ORAL
     Route: 048
     Dates: start: 20110516
  10. ESCITALOPRAM OXALATE [Concomitant]
  11. AMPHETAMINE, DEXTROAMPHETAMINE MIXED SALTS [Concomitant]

REACTIONS (9)
  - STOMATITIS [None]
  - DEPRESSED LEVEL OF CONSCIOUSNESS [None]
  - HUNGER [None]
  - OOPHORECTOMY [None]
  - THIRST [None]
  - PAIN [None]
  - INITIAL INSOMNIA [None]
  - RESPIRATORY DEPRESSION [None]
  - FATIGUE [None]
